FAERS Safety Report 23672765 (Version 1)
Quarter: 2024Q1

REPORT INFORMATION
  Report Type: Spontaneous
  Country: CH (occurrence: CH)
  Receive Date: 20240326
  Receipt Date: 20240326
  Transmission Date: 20240409
  Serious: Yes (Other)
  Sender: FDA-Public Use
  Company Number: None

PATIENT
  Age: 24 Year
  Sex: Female
  Weight: 28.2 kg

DRUGS (28)
  1. CLONAZEPAM [Suspect]
     Active Substance: CLONAZEPAM
     Indication: Restlessness
     Route: 048
     Dates: start: 20240116, end: 20240116
  2. CLONAZEPAM [Suspect]
     Active Substance: CLONAZEPAM
     Indication: Restlessness
     Dates: start: 20240117, end: 20240125
  3. CLONAZEPAM [Suspect]
     Active Substance: CLONAZEPAM
     Indication: Restlessness
     Route: 048
     Dates: end: 20240115
  4. CLONAZEPAM [Suspect]
     Active Substance: CLONAZEPAM
     Indication: Restlessness
     Dosage: ONE TABLET PER DAY IF NECESSARY ; AS NECESSARY
     Route: 048
     Dates: end: 20240119
  5. PRAZINE (PROMAZINE HYDROCHLORIDE) [Suspect]
     Active Substance: PROMAZINE HYDROCHLORIDE
     Indication: Restlessness
     Route: 048
     Dates: start: 20240130
  6. PRAZINE (PROMAZINE HYDROCHLORIDE) [Suspect]
     Active Substance: PROMAZINE HYDROCHLORIDE
     Indication: Restlessness
     Route: 048
     Dates: end: 20240107
  7. PRAZINE (PROMAZINE HYDROCHLORIDE) [Suspect]
     Active Substance: PROMAZINE HYDROCHLORIDE
     Indication: Restlessness
     Dosage: ONCE PER DAY IF NECESSARY ; AS NECESSARY
     Route: 048
     Dates: end: 20240117
  8. FLUOXETINE [Suspect]
     Active Substance: FLUOXETINE HYDROCHLORIDE
     Route: 048
     Dates: start: 20240127
  9. FLUOXETINE [Suspect]
     Active Substance: FLUOXETINE HYDROCHLORIDE
     Route: 048
     Dates: end: 20240121
  10. QUETIAPINE [Suspect]
     Active Substance: QUETIAPINE
  11. QUETIAPINE [Suspect]
     Active Substance: QUETIAPINE
     Dosage: UP TO 4X PER DAY ; AS NECESSARY
  12. ACETAMINOPHEN\CAFFEINE [Suspect]
     Active Substance: ACETAMINOPHEN\CAFFEINE
     Dosage: AS NECESSARY
  13. DROSPIRENONE\ETHINYL ESTRADIOL [Suspect]
     Active Substance: DROSPIRENONE\ETHINYL ESTRADIOL
     Indication: Contraception
     Dosage: AS NECESSARY
  14. HERBALS [Suspect]
     Active Substance: HERBALS
     Dosage: AS NECESSARY
  15. FOLIC ACID [Concomitant]
     Active Substance: FOLIC ACID
     Route: 048
  16. MAGNESIUM [Concomitant]
     Active Substance: MAGNESIUM
     Route: 048
  17. MAGNESIUM ASPARTATE HYDROCHLORIDE [Concomitant]
     Active Substance: MAGNESIUM ASPARTATE HYDROCHLORIDE
     Route: 048
     Dates: end: 20240122
  18. MAGNESIUM ASPARTATE HYDROCHLORIDE [Concomitant]
     Active Substance: MAGNESIUM ASPARTATE HYDROCHLORIDE
     Route: 048
  19. PANTOPRAZOLE SODIUM [Concomitant]
     Active Substance: PANTOPRAZOLE SODIUM
     Dosage: AT 6:50 H
     Route: 048
  20. ASCORBIC ACID\MINERALS\VITAMINS [Concomitant]
     Active Substance: ASCORBIC ACID\MINERALS\VITAMINS
     Route: 048
     Dates: end: 20240124
  21. MOTILIUM [Concomitant]
     Active Substance: DOMPERIDONE
     Dosage: AS NECESSARY
     Route: 048
     Dates: end: 20240201
  22. AGIOLAX MIT SENNA [Concomitant]
  23. LAVENDER OIL [Concomitant]
     Active Substance: LAVENDER OIL
  24. BURGERSTEIN MULTIVITAMIN [Concomitant]
  25. POTASSIUM BICARBONATE\POTASSIUM CITRATE [Concomitant]
     Active Substance: POTASSIUM BICARBONATE\POTASSIUM CITRATE
  26. HERBALS\PLANTAGO OVATA LEAF [Concomitant]
     Active Substance: HERBALS\PLANTAGO OVATA LEAF
  27. Redormin [Concomitant]
     Dosage: AS NECESSARY
  28. VENTOLIN [Concomitant]
     Active Substance: ALBUTEROL SULFATE
     Dosage: AS NECESSARY

REACTIONS (1)
  - Hepatic failure [Recovering/Resolving]

NARRATIVE: CASE EVENT DATE: 20240101
